FAERS Safety Report 6161977-X (Version None)
Quarter: 2009Q2

REPORT INFORMATION
  Report Type: 
  Country: None (occurrence: None)
  Receive Date: 20090417
  Receipt Date: 20090417
  Transmission Date: 20091009
  Serious: Yes (Other)
  Sender: FDA-Public Use
  Company Number: None

PATIENT
  Age: 39 Year
  Sex: Female
  Weight: 59.8748 kg

DRUGS (2)
  1. BACTRIM [Suspect]
     Indication: BACTERIAL INFECTION
     Dosage: ONE TABLET TWICE DAILY PO
     Route: 048
     Dates: start: 20090409, end: 20090415
  2. BACTRIM [Suspect]
     Indication: INGROWING NAIL
     Dosage: ONE TABLET TWICE DAILY PO
     Route: 048
     Dates: start: 20090409, end: 20090415

REACTIONS (9)
  - ASTHENIA [None]
  - BACK PAIN [None]
  - CHILLS [None]
  - HEADACHE [None]
  - HOT FLUSH [None]
  - IMPAIRED WORK ABILITY [None]
  - MYALGIA [None]
  - PYREXIA [None]
  - RASH ERYTHEMATOUS [None]
